FAERS Safety Report 23098857 (Version 1)
Quarter: 2023Q4

REPORT INFORMATION
  Report Type: Spontaneous
  Country: US (occurrence: US)
  Receive Date: 20231024
  Receipt Date: 20231024
  Transmission Date: 20240110
  Serious: No
  Sender: FDA-Public Use
  Company Number: US-Vifor (International) Inc.-VIT-2023-07372

PATIENT
  Age: 84 Year
  Sex: Female

DRUGS (1)
  1. MIRCERA [Suspect]
     Active Substance: METHOXY POLYETHYLENE GLYCOL-EPOETIN BETA
     Indication: Haemoglobin abnormal
     Route: 058
     Dates: start: 202303

REACTIONS (6)
  - Fatigue [Unknown]
  - Decreased appetite [Recovered/Resolved]
  - Blood pressure increased [Unknown]
  - Heart rate increased [Recovered/Resolved]
  - Nausea [Recovered/Resolved]
  - Product administered at inappropriate site [Unknown]

NARRATIVE: CASE EVENT DATE: 20230901
